FAERS Safety Report 25549130 (Version 2)
Quarter: 2025Q3

REPORT INFORMATION
  Report Type: Spontaneous
  Country: US (occurrence: US)
  Receive Date: 20250714
  Receipt Date: 20250804
  Transmission Date: 20251020
  Serious: No
  Sender: MYLAN
  Company Number: US-MYLANLABS-2025M1057430

PATIENT
  Sex: Male

DRUGS (7)
  1. LYRICA [Suspect]
     Active Substance: PREGABALIN
     Indication: Multiple sclerosis
  2. LYRICA [Suspect]
     Active Substance: PREGABALIN
     Indication: Pain in extremity
  3. METHADONE [Concomitant]
     Active Substance: METHADONE HYDROCHLORIDE
  4. OXYCODONE [Concomitant]
     Active Substance: OXYCODONE
  5. NAPROXEN [Concomitant]
     Active Substance: NAPROXEN
  6. MELATONIN [Concomitant]
     Active Substance: MELATONIN
  7. BACLOFEN [Concomitant]
     Active Substance: BACLOFEN

REACTIONS (2)
  - Pain [Unknown]
  - Off label use [Unknown]

NARRATIVE: CASE EVENT DATE: 20240101
